FAERS Safety Report 14953936 (Version 3)
Quarter: 2018Q3

REPORT INFORMATION
  Report Type: Spontaneous
  Country: US (occurrence: US)
  Receive Date: 20180530
  Receipt Date: 20180918
  Transmission Date: 20181010
  Serious: No
  Sender: FDA-Public Use
  Company Number: US-ASTRAZENECA-2017SE59820

PATIENT
  Age: 28001 Day
  Sex: Male

DRUGS (1)
  1. TUDORZA PRESSAIR [Suspect]
     Active Substance: ACLIDINIUM BROMIDE
     Route: 055

REACTIONS (7)
  - Device failure [Unknown]
  - Product quality issue [Unknown]
  - Drug dose omission [Unknown]
  - Intentional product misuse [Unknown]
  - Product use issue [Unknown]
  - Wrong technique in product usage process [Unknown]
  - Memory impairment [Unknown]

NARRATIVE: CASE EVENT DATE: 20170531
